FAERS Safety Report 5214717-2 (Version None)
Quarter: 2007Q1

REPORT INFORMATION
  Report Type: 
  Country: None (occurrence: None)
  Receive Date: 20070117
  Receipt Date: 20061213
  Transmission Date: 20070707
  Serious: Yes (Other)
  Sender: FDA-Public Use
  Company Number: IT-1160135

PATIENT
  Age: 42 Year
  Sex: Female

DRUGS (2)
  1. TOBRADEX [Suspect]
     Indication: CONJUNCTIVITIS
     Dosage: EYE DROPS, SUSPENSION OPHTHALMIC
     Route: 047
     Dates: start: 20060930, end: 20061001
  2. OFTAQUIX (LEVOFLOXACIN) [Concomitant]

REACTIONS (3)
  - CONJUNCTIVAL HAEMORRHAGE [None]
  - PERIORBITAL HAEMATOMA [None]
  - PERIORBITAL OEDEMA [None]
